FAERS Safety Report 21058990 (Version 2)
Quarter: 2022Q3

REPORT INFORMATION
  Report Type: Spontaneous
  Country: DE (occurrence: DE)
  Receive Date: 20220708
  Receipt Date: 20220722
  Transmission Date: 20221027
  Serious: Yes (Other)
  Sender: FDA-Public Use
  Company Number: DE-Accord-268266

PATIENT
  Age: 89 Year
  Sex: Male

DRUGS (2)
  1. SPIRONOLACTONE [Suspect]
     Active Substance: SPIRONOLACTONE
     Indication: Product used for unknown indication
     Dosage: STRENGTH: 50 MG?DOSE: HALF PER DAY/ONCE DAILY
     Route: 048
  2. SPIRONOLACTONE [Suspect]
     Active Substance: SPIRONOLACTONE
     Indication: Product used for unknown indication
     Dosage: STRENGTH: 25 MG
     Route: 048

REACTIONS (3)
  - Cardiac failure [Unknown]
  - Wrong technique in product usage process [Unknown]
  - Condition aggravated [Unknown]
